FAERS Safety Report 8427992-8 (Version None)
Quarter: 2012Q2

REPORT INFORMATION
  Report Type: 
  Country: None (occurrence: None)
  Receive Date: 20120611
  Receipt Date: 20120607
  Transmission Date: 20120825
  Serious: Yes (Death, Life-Threatening, Disabling, Other)
  Sender: FDA-Public Use
  Company Number: PHHY2009JP18317

PATIENT
  Sex: Female

DRUGS (16)
  1. PRAVASTATIN SODIUM [Concomitant]
     Dosage: 5 MG, UNK
     Route: 048
     Dates: start: 20090702
  2. ALDACTONE [Concomitant]
     Dosage: 50 MG, UNK
     Dates: start: 20110411
  3. DIOVAN [Concomitant]
     Dosage: 80 MG, UNK
     Route: 048
  4. LASIX [Concomitant]
     Dosage: 40 MG, UNK
     Route: 048
  5. ASPARA K [Concomitant]
     Dosage: 900 MG, UNK
     Dates: start: 20110411
  6. METHYLPREDNISOLONE SODIUM SUCCINATE [Concomitant]
     Dosage: 1000 MG, UNK
  7. SUMIFERON [Concomitant]
     Indication: CHRONIC MYELOID LEUKAEMIA
     Dosage: UNK
     Dates: start: 20110301, end: 20110404
  8. OMEPRAZOLE [Concomitant]
     Dosage: 20 MG, UNK
     Dates: start: 20110411
  9. CEFOPERAZONE SODIUM/SULBACTAM SODIUM [Concomitant]
     Dosage: 2 G, UNK
     Dates: start: 20110228, end: 20110307
  10. TASIGNA [Suspect]
     Dosage: 800 MG, DAILY
     Route: 048
     Dates: start: 20110317, end: 20110411
  11. FAMOTIDINE [Concomitant]
     Dosage: 20 MG, UNK
     Route: 048
  12. TASIGNA [Suspect]
     Indication: CHRONIC MYELOID LEUKAEMIA
     Dosage: 800 MG, BID
     Route: 048
     Dates: start: 20090501
  13. AMLODIPINE [Concomitant]
     Dosage: 5 MG, UNK
     Route: 048
  14. ALLOPURINOL [Concomitant]
     Dosage: 400 MG, UNK
     Dates: start: 20110411
  15. MANNITOL [Concomitant]
     Dosage: 20 MG, UNK
     Dates: start: 20110411
  16. OMEGACIN [Concomitant]
     Dosage: 0.3 G, UNK

REACTIONS (14)
  - NEUTROPENIA [None]
  - EOSINOPHIL COUNT INCREASED [None]
  - HYPERBILIRUBINAEMIA [None]
  - BLOOD GLUCOSE INCREASED [None]
  - MENTAL DISORDER [None]
  - MONOCYTE COUNT INCREASED [None]
  - ANAEMIA [None]
  - PLATELET COUNT DECREASED [None]
  - RENAL IMPAIRMENT [None]
  - HYPERPHOSPHATAEMIA [None]
  - HEPATIC FUNCTION ABNORMAL [None]
  - HYPERKALAEMIA [None]
  - CHRONIC MYELOID LEUKAEMIA [None]
  - TREMOR [None]
